FAERS Safety Report 10966973 (Version 3)
Quarter: 2015Q2

REPORT INFORMATION
  Report Type: Spontaneous
  Country: US (occurrence: US)
  Receive Date: 20150330
  Receipt Date: 20150519
  Transmission Date: 20150821
  Serious: Yes (Hospitalization)
  Sender: FDA-Public Use
  Company Number: US-BAYER-2015-076392

PATIENT
  Age: 25 Year
  Sex: Female
  Weight: 54.42 kg

DRUGS (2)
  1. APRI [Concomitant]
     Active Substance: DESOGESTREL\ETHINYL ESTRADIOL
  2. MIRENA [Suspect]
     Active Substance: LEVONORGESTREL
     Indication: CONTRACEPTION
     Dosage: 20 MCG/24HR, CONT
     Route: 015
     Dates: start: 20121029, end: 20130502

REACTIONS (6)
  - Device breakage [None]
  - Injury [None]
  - Pain [None]
  - Uterine perforation [None]
  - Abdominal pain [None]
  - Complication of device removal [None]

NARRATIVE: CASE EVENT DATE: 201304
